FAERS Safety Report 11770797 (Version 1)
Quarter: 2015Q4

REPORT INFORMATION
  Report Type: Spontaneous
  Country: GB (occurrence: GB)
  Receive Date: 20151123
  Receipt Date: 20151123
  Transmission Date: 20160304
  Serious: Yes (Disabling, Other)
  Sender: FDA-Public Use
  Company Number: GB-ASTRAZENECA-2015SF11365

PATIENT
  Sex: Female
  Weight: 72.6 kg

DRUGS (1)
  1. QUETIAPINE [Suspect]
     Active Substance: QUETIAPINE
     Indication: ADJUSTMENT DISORDER WITH MIXED ANXIETY AND DEPRESSED MOOD
     Route: 048
     Dates: start: 20130202, end: 20131116

REACTIONS (4)
  - Infertility female [Not Recovered/Not Resolved]
  - Exposure during pregnancy [Unknown]
  - Blood follicle stimulating hormone increased [Not Recovered/Not Resolved]
  - Abortion spontaneous [Recovered/Resolved with Sequelae]

NARRATIVE: CASE EVENT DATE: 20131116
